FAERS Safety Report 14233688 (Version 1)
Quarter: 2017Q4

REPORT INFORMATION
  Report Type: Report from Study
  Country: US (occurrence: US)
  Receive Date: 20171129
  Receipt Date: 20171129
  Transmission Date: 20180321
  Serious: Yes (Death)
  Sender: FDA-Public Use
  Company Number: US-VIFOR (INTERNATIONAL) INC.-VIT-2017-07746

PATIENT
  Sex: Male
  Weight: 61.29 kg

DRUGS (4)
  1. TAMSULOSIN [Concomitant]
     Active Substance: TAMSULOSIN
     Route: 048
     Dates: start: 201308
  2. VELTASSA [Suspect]
     Active Substance: PATIROMER
     Indication: CHRONIC KIDNEY DISEASE
     Route: 048
     Dates: start: 20170608, end: 201706
  3. CARVEDILOL. [Concomitant]
     Active Substance: CARVEDILOL
     Indication: ARRHYTHMIA
     Dosage: JAN OR FEB OF 2017
     Route: 048
     Dates: start: 2017
  4. FUROSEMIDE. [Concomitant]
     Active Substance: FUROSEMIDE
     Indication: RENAL DISORDER
     Dosage: STARTED AN YEAR AGO
     Route: 048

REACTIONS (5)
  - Product physical consistency issue [Unknown]
  - Off label use [Unknown]
  - Drug intolerance [Recovered/Resolved]
  - Product physical issue [Unknown]
  - Death [Fatal]

NARRATIVE: CASE EVENT DATE: 2017
